FAERS Safety Report 21402036 (Version 1)
Quarter: 2022Q4

REPORT INFORMATION
  Report Type: Spontaneous
  Country: US (occurrence: US)
  Receive Date: 20221003
  Receipt Date: 20221003
  Transmission Date: 20230112
  Serious: No
  Sender: FDA-Public Use
  Company Number: US-BRISTOL-MYERS SQUIBB COMPANY-2022-114794

PATIENT
  Age: 46 Year
  Sex: Female

DRUGS (3)
  1. ZEPOSIA [Suspect]
     Active Substance: OZANIMOD HYDROCHLORIDE
     Indication: Multiple sclerosis
     Dosage: 0.23 MG BY MOUTH DAILY FOR 4 DAYS
     Route: 048
     Dates: start: 20220823
  2. ZEPOSIA [Suspect]
     Active Substance: OZANIMOD HYDROCHLORIDE
     Dosage: THEN TAKE 0.46 MG BY MOUTH DAILY FOR 3 DAYS
     Route: 048
  3. ZEPOSIA [Suspect]
     Active Substance: OZANIMOD HYDROCHLORIDE
     Dosage: DAILY
     Route: 048

REACTIONS (5)
  - Hypoaesthesia [Unknown]
  - Headache [Unknown]
  - Sensitive skin [Unknown]
  - Fatigue [Unknown]
  - Condition aggravated [Unknown]
